FAERS Safety Report 9182137 (Version 1)
Quarter: 2012Q4

REPORT INFORMATION
  Report Type: 
  Country: BR (occurrence: BR)
  Receive Date: 20121030
  Receipt Date: 20121030
  Transmission Date: 20130627
  Serious: Yes (Hospitalization)
  Sender: FDA-Public Use
  Company Number: BR-AMGEN-BRASP2012068425

PATIENT
  Age: 49 Year
  Sex: Female
  Weight: 50 kg

DRUGS (4)
  1. ENBREL [Suspect]
     Indication: RHEUMATOID ARTHRITIS
     Dosage: UNK
     Dates: start: 20090310, end: 201110
  2. ENBREL [Suspect]
     Dosage: 50 mg, qwk
     Dates: start: 201110, end: 20120420
  3. DICLOFENAC POTASSIUM [Concomitant]
     Indication: RHEUMATOID ARTHRITIS
     Dosage: UNK
     Dates: start: 2002
  4. CALCIUM [Concomitant]
     Indication: SYNOVIAL DISORDER
     Dosage: UNK
     Dates: start: 2011

REACTIONS (1)
  - Hip deformity [Unknown]
